FAERS Safety Report 7694445-4 (Version None)
Quarter: 2011Q3

REPORT INFORMATION
  Report Type: 
  Country: None (occurrence: None)
  Receive Date: 20110819
  Receipt Date: 20110805
  Transmission Date: 20111222
  Serious: Yes (Life-Threatening, Hospitalization)
  Sender: FDA-Public Use
  Company Number: PHBS1994JP00029

PATIENT
  Age: 42 Year
  Sex: Female

DRUGS (1)
  1. METHYLERGONOVINE MALEATE [Suspect]
     Dosage: 0.25 MG, UNK
     Route: 048

REACTIONS (6)
  - ARTERIOSPASM CORONARY [None]
  - ELECTROCARDIOGRAM T WAVE INVERSION [None]
  - CHEST PAIN [None]
  - ELECTROCARDIOGRAM ABNORMAL [None]
  - BLOOD CREATINE PHOSPHOKINASE INCREASED [None]
  - ELECTROCARDIOGRAM Q WAVE ABNORMAL [None]
